FAERS Safety Report 5482845-2 (Version None)
Quarter: 2007Q4

REPORT INFORMATION
  Report Type: 
  Country: None (occurrence: None)
  Receive Date: 20071011
  Receipt Date: 20071001
  Transmission Date: 20080405
  Serious: Yes (Hospitalization, Other)
  Sender: FDA-Public Use
  Company Number: US-PFIZER INC-2007028137

PATIENT
  Sex: Male

DRUGS (2)
  1. CELEBREX [Suspect]
     Route: 048
     Dates: start: 20010116, end: 20010215
  2. BEXTRA [Suspect]
     Indication: PAIN
     Dates: start: 20030831

REACTIONS (1)
  - MYOCARDIAL INFARCTION [None]
